FAERS Safety Report 11635110 (Version 2)
Quarter: 2017Q2

REPORT INFORMATION
  Report Type: Report from Study
  Country: PL (occurrence: PL)
  Receive Date: 20151015
  Receipt Date: 20170407
  Transmission Date: 20170829
  Serious: Yes (Death, Other)
  Sender: FDA-Public Use
  Company Number: DE-ACTELION-A-NJ2015-125662

PATIENT
  Age: 49 Year
  Sex: Female

DRUGS (10)
  1. REVATIO [Concomitant]
     Active Substance: SILDENAFIL CITRATE
  2. FUROSEMIDE. [Concomitant]
     Active Substance: FUROSEMIDE
  3. CONTROLOC [Concomitant]
     Active Substance: PANTOPRAZOLE SODIUM
  4. FOLIC ACID. [Concomitant]
     Active Substance: FOLIC ACID
  5. KALIPOZ [Concomitant]
     Active Substance: POTASSIUM CHLORIDE
  6. ACENOCOUMAROL [Concomitant]
     Active Substance: ACENOCOUMAROL
  7. SPIRONOLACTONE. [Concomitant]
     Active Substance: SPIRONOLACTONE
  8. ENDOXAN [Concomitant]
     Active Substance: CYCLOPHOSPHAMIDE
  9. VENTAVIS [Suspect]
     Active Substance: ILOPROST
     Indication: PULMONARY ARTERIAL HYPERTENSION
     Dosage: 5 MCG, 6X/DAY
     Route: 055
     Dates: start: 20130411, end: 20150915
  10. MILURIT [Concomitant]
     Active Substance: ALLOPURINOL

REACTIONS (3)
  - Acute respiratory failure [Fatal]
  - Oedema peripheral [Unknown]
  - Hyperthyroidism [Unknown]

NARRATIVE: CASE EVENT DATE: 20150625
